FAERS Safety Report 15559994 (Version 1)
Quarter: 2018Q4

REPORT INFORMATION
  Report Type: Spontaneous
  Country: US (occurrence: US)
  Receive Date: 20181022
  Receipt Date: 20181022
  Transmission Date: 20190205
  Serious: Yes (Hospitalization)
  Sender: FDA-Public Use
  Company Number: None

PATIENT
  Age: 51 Year
  Sex: Female
  Weight: 68.54 kg

DRUGS (3)
  1. ISOVUE 300 [Suspect]
     Active Substance: IOPAMIDOL
     Dates: start: 20181004
  2. ISOVUE 300 [Suspect]
     Active Substance: IOPAMIDOL
     Indication: BREAST CANCER
     Route: 042
     Dates: start: 20180209
  3. ISOVUE 300 [Suspect]
     Active Substance: IOPAMIDOL
     Dates: start: 20180911

REACTIONS (3)
  - Pruritus [None]
  - Anxiety [None]
  - Urticaria [None]

NARRATIVE: CASE EVENT DATE: 20181004
